FAERS Safety Report 4949938-7 (Version None)
Quarter: 2006Q1

REPORT INFORMATION
  Report Type: 
  Country: None (occurrence: None)
  Receive Date: 20060316
  Receipt Date: 20060307
  Transmission Date: 20060701
  Serious: Yes (Hospitalization, Other)
  Sender: FDA-Public Use
  Company Number: 200610106BWH

PATIENT
  Age: 55 Year
  Sex: Female
  Weight: 56.246 kg

DRUGS (17)
  1. SORAFENIB [Suspect]
     Indication: METASTATIC RENAL CELL CARCINOMA
     Dosage: 400  MG, BID, ORAL
     Route: 048
     Dates: start: 20051215, end: 20051229
  2. SORAFENIB [Suspect]
     Indication: METASTATIC RENAL CELL CARCINOMA
     Dosage: 400  MG, BID, ORAL
     Route: 048
     Dates: start: 20060120, end: 20060121
  3. SORAFENIB [Suspect]
     Indication: METASTATIC RENAL CELL CARCINOMA
     Dosage: 400  MG, BID, ORAL
     Route: 048
     Dates: start: 20060203
  4. LUNESTA [Concomitant]
  5. PERCOCET [Concomitant]
  6. IMODIUM [Concomitant]
  7. COMPAZINE [Concomitant]
  8. ATIVAN [Concomitant]
  9. DILAUDID [Concomitant]
  10. K-DUR 10 [Concomitant]
  11. TAZIDIME [Concomitant]
  12. ASCORBIC ACID [Concomitant]
  13. VITAMIN A [Concomitant]
  14. ZINC SULFATE [Concomitant]
  15. OXYCONTIN [Concomitant]
  16. DURAGESIC-100 [Concomitant]
  17. PROTONIX [Concomitant]

REACTIONS (21)
  - ABDOMINAL PAIN [None]
  - BACTERIA STOOL IDENTIFIED [None]
  - BLOOD CHLORIDE DECREASED [None]
  - BLOOD POTASSIUM DECREASED [None]
  - BLOOD PRESSURE DECREASED [None]
  - BLOOD SODIUM DECREASED [None]
  - CARDIOMEGALY [None]
  - CHILLS [None]
  - COLONIC POLYP [None]
  - DECREASED APPETITE [None]
  - DECUBITUS ULCER [None]
  - DEHYDRATION [None]
  - DIARRHOEA [None]
  - GASTRITIS [None]
  - HAEMOGLOBIN DECREASED [None]
  - HYPERHIDROSIS [None]
  - OCCULT BLOOD POSITIVE [None]
  - PAIN IN EXTREMITY [None]
  - PYREXIA [None]
  - RENAL FAILURE [None]
  - WHITE BLOOD CELLS STOOL [None]
